FAERS Safety Report 14368123 (Version 3)
Quarter: 2019Q1

REPORT INFORMATION
  Report Type: Spontaneous
  Country: US (occurrence: US)
  Receive Date: 20180109
  Receipt Date: 20190306
  Transmission Date: 20190417
  Serious: Yes (Death, Hospitalization, Other)
  Sender: FDA-Public Use
  Company Number: US-PFIZER INC-2018007101

PATIENT
  Age: 91 Year
  Sex: Male

DRUGS (1)
  1. XALKORI [Suspect]
     Active Substance: CRIZOTINIB
     Indication: LUNG NEOPLASM MALIGNANT
     Dosage: 250 MG, 2X/DAY
     Dates: start: 20171205, end: 20180102

REACTIONS (8)
  - Renal disorder [Unknown]
  - Pericardial effusion [Unknown]
  - Pulmonary oedema [Unknown]
  - Asthenia [Unknown]
  - Death [Fatal]
  - Cardiac disorder [Unknown]
  - Depression [Unknown]
  - Loss of personal independence in daily activities [Unknown]
